FAERS Safety Report 7365040-1 (Version None)
Quarter: 2011Q1

REPORT INFORMATION
  Report Type: 
  Country: None (occurrence: None)
  Receive Date: 20110321
  Receipt Date: 20110316
  Transmission Date: 20110831
  Serious: Yes (Disabling)
  Sender: FDA-Public Use
  Company Number: GB-TEVA-271926ISR

PATIENT
  Age: 73 Year
  Sex: Female
  Weight: 99.2 kg

DRUGS (1)
  1. TRAMADOL HCL [Suspect]

REACTIONS (5)
  - SKIN BURNING SENSATION [None]
  - SWELLING [None]
  - SWELLING FACE [None]
  - SKIN EXFOLIATION [None]
  - JOINT SWELLING [None]
